FAERS Safety Report 15315528 (Version 1)
Quarter: 2018Q3

REPORT INFORMATION
  Report Type: Spontaneous
  Country: US (occurrence: US)
  Receive Date: 20180824
  Receipt Date: 20180824
  Transmission Date: 20181010
  Serious: Yes (Other)
  Sender: FDA-Public Use
  Company Number: US-PFIZER INC-2018338362

PATIENT
  Sex: Female

DRUGS (1)
  1. LYRICA [Suspect]
     Active Substance: PREGABALIN
     Indication: PAIN
     Dosage: 100 MG, UNK
     Route: 048

REACTIONS (13)
  - Abnormal behaviour [Unknown]
  - Attention deficit/hyperactivity disorder [Unknown]
  - Memory impairment [Unknown]
  - Sleep disorder [Unknown]
  - Drug hypersensitivity [Unknown]
  - Condition aggravated [Unknown]
  - Thyroid disorder [Unknown]
  - Body height decreased [Unknown]
  - Intentional product misuse [Unknown]
  - Intervertebral disc disorder [Unknown]
  - Dyslexia [Unknown]
  - Cerebral disorder [Unknown]
  - Impetigo [Unknown]
